FAERS Safety Report 7378903-8 (Version None)
Quarter: 2011Q1

REPORT INFORMATION
  Report Type: 
  Country: None (occurrence: None)
  Receive Date: 20110328
  Receipt Date: 20110322
  Transmission Date: 20110831
  Serious: Yes (Death, Hospitalization)
  Sender: FDA-Public Use
  Company Number: PHHY2011VE21681

PATIENT
  Sex: Female

DRUGS (3)
  1. GLUCOFAGE [Concomitant]
     Dosage: UNK UKN, UNK
  2. EXELON [Suspect]
     Indication: DEMENTIA ALZHEIMER'S TYPE
     Dosage: 1.5 MG DAILY
     Dates: start: 20071210
  3. TEGRETOL [Concomitant]
     Dosage: UNK UKN, UNK

REACTIONS (3)
  - MYOCARDIAL INFARCTION [None]
  - CHEST PAIN [None]
  - VENOUS OCCLUSION [None]
